FAERS Safety Report 10985123 (Version 2)
Quarter: 2015Q2

REPORT INFORMATION
  Report Type: Spontaneous
  Country: IT (occurrence: IT)
  Receive Date: 20150404
  Receipt Date: 20150428
  Transmission Date: 20150821
  Serious: Yes (Disabling)
  Sender: FDA-Public Use
  Company Number: PHHY2015IT038361

PATIENT
  Age: 50 Year
  Sex: Female

DRUGS (6)
  1. CARBOLITHIUM [Concomitant]
     Active Substance: LITHIUM CARBONATE
     Indication: BIPOLAR DISORDER
     Dosage: 1050 MG, UNK
     Route: 048
     Dates: start: 20141219, end: 20150312
  2. ZIPRASIDONE SANDOZ [Suspect]
     Active Substance: ZIPRASIDONE
     Indication: BIPOLAR DISORDER
     Dosage: 80 MG, QD
     Route: 048
     Dates: start: 20121204, end: 20131204
  3. SYCREST [Suspect]
     Active Substance: ASENAPINE MALEATE
     Indication: BIPOLAR DISORDER
     Dosage: 20 MG, QD
     Route: 060
     Dates: start: 20141017, end: 20150228
  4. SYCREST [Suspect]
     Active Substance: ASENAPINE MALEATE
     Dosage: 10 MG, QD
     Route: 060
  5. ABILIFY [Suspect]
     Active Substance: ARIPIPRAZOLE
     Indication: BIPOLAR DISORDER
     Dosage: 15 MG, QD
     Route: 048
     Dates: start: 20131204, end: 20141016
  6. RIVOTRIL [Concomitant]
     Active Substance: CLONAZEPAM
     Indication: INSOMNIA
     Dosage: 3 MG, UNK
     Route: 048
     Dates: start: 20120801, end: 20150115

REACTIONS (2)
  - Parkinsonism [Recovering/Resolving]
  - Cerebral atrophy [Recovering/Resolving]

NARRATIVE: CASE EVENT DATE: 20130301
